FAERS Safety Report 5583324-4 (Version None)
Quarter: 2007Q4

REPORT INFORMATION
  Report Type: 
  Country: None (occurrence: None)
  Receive Date: 20071130
  Receipt Date: 20061227
  Transmission Date: 20080405
  Serious: Yes (Other)
  Sender: FDA-Public Use
  Company Number: WAES 0612USA04017

PATIENT
  Age: 57 Year
  Sex: Female
  Weight: 71.2147 kg

DRUGS (5)
  1. FOSAMAX [Suspect]
     Dosage: PO ; 10 MG/PO ; 70 MG/PO
     Route: 048
     Dates: start: 19991201, end: 20060501
  2. FOSAMAX [Suspect]
     Dosage: PO
     Route: 048
  3. EVISTA [Concomitant]
  4. SYNTHROID [Concomitant]
  5. ZOCOR [Concomitant]

REACTIONS (1)
  - OSTEONECROSIS [None]
